FAERS Safety Report 4597080-X (Version None)
Quarter: 2005Q1

REPORT INFORMATION
  Report Type: 
  Country: None (occurrence: None)
  Receive Date: 20050222
  Receipt Date: 20050203
  Transmission Date: 20050727
  Serious: Yes (Other)
  Sender: FDA-Public Use
  Company Number: 601822

PATIENT
  Age: 39 Year
  Sex: Male
  Weight: 82 kg

DRUGS (4)
  1. RECOMBINATE [Suspect]
     Indication: HAEMOPHILIA
     Dosage: 3500 IU; ONCE; INTRAVENOUS
     Route: 042
     Dates: start: 20050202, end: 20050202
  2. RECOMBINATE [Suspect]
  3. MORPHINE [Concomitant]
  4. PLASMA [Concomitant]

REACTIONS (5)
  - NAUSEA [None]
  - RESPIRATORY DISTRESS [None]
  - TREMOR [None]
  - URTICARIA [None]
  - VOMITING [None]
